FAERS Safety Report 8809669 (Version 2)
Quarter: 2014Q3

REPORT INFORMATION
  Report Type: Report from Study
  Country: US (occurrence: US)
  Receive Date: 20120926
  Receipt Date: 20140827
  Transmission Date: 20150326
  Serious: Yes (Other)
  Sender: FDA-Public Use
  Company Number: US-ROCHE-1126185

PATIENT
  Sex: Female
  Weight: 55 kg

DRUGS (9)
  1. XELODA [Suspect]
     Active Substance: CAPECITABINE
     Indication: PRODUCT USED FOR UNKNOWN INDICATION
     Route: 065
  2. NAVELBINE [Concomitant]
     Active Substance: VINORELBINE TARTRATE
  3. ZOMETA [Concomitant]
     Active Substance: ZOLEDRONIC ACID
  4. HERCEPTIN [Suspect]
     Active Substance: TRASTUZUMAB
     Indication: BREAST CANCER FEMALE
     Route: 065
  5. ABRAXANE [Concomitant]
     Active Substance: PACLITAXEL
  6. AVASTIN [Suspect]
     Active Substance: BEVACIZUMAB
     Indication: BREAST CANCER FEMALE
     Route: 042
  7. AVASTIN [Suspect]
     Active Substance: BEVACIZUMAB
     Indication: UTERINE CANCER
  8. AVASTIN [Suspect]
     Active Substance: BEVACIZUMAB
     Indication: BREAST CANCER METASTATIC
  9. HERCEPTIN [Suspect]
     Active Substance: TRASTUZUMAB
     Indication: UTERINE CANCER

REACTIONS (5)
  - Metastases to bone [Unknown]
  - Depression [Unknown]
  - Pain [Unknown]
  - Off label use [Unknown]
  - Cachexia [Unknown]
